FAERS Safety Report 9852279 (Version 1)
Quarter: 2013Q4

REPORT INFORMATION
  Report Type: Spontaneous
  Country: US (occurrence: None)
  Receive Date: 20131127
  Receipt Date: 20131127
  Transmission Date: 20140711
  Serious: No
  Sender: FDA-Public Use
  Company Number: 224502LEO

PATIENT
  Age: 64 Year
  Sex: Female

DRUGS (1)
  1. PICATO (0.015 %, GEL) [Suspect]
     Indication: ACTINIC KERATOSIS
     Dosage: (1 IN 1 D), TOPICAL
     Route: 061
     Dates: start: 20131029, end: 20131030

REACTIONS (7)
  - Application site paraesthesia [None]
  - Miliaria [None]
  - Application site pain [None]
  - Application site erythema [None]
  - Application site vesicles [None]
  - Drug administration error [None]
  - Incorrect drug administration duration [None]
